FAERS Safety Report 7039183-6 (Version None)
Quarter: 2010Q3

REPORT INFORMATION
  Report Type: 
  Country: None (occurrence: None)
  Receive Date: 20100927
  Receipt Date: 20100721
  Transmission Date: 20110219
  Serious: No
  Sender: FDA-Public Use
  Company Number: US-WYE-H16335010

PATIENT

DRUGS (1)
  1. TORISEL [Suspect]
     Dates: start: 20100601

REACTIONS (3)
  - ASTHENIA [None]
  - FALL [None]
  - HYPOAESTHESIA [None]
